FAERS Safety Report 9543519 (Version 3)
Quarter: 2013Q4

REPORT INFORMATION
  Report Type: Spontaneous
  Country: US (occurrence: US)
  Receive Date: 20130923
  Receipt Date: 20131115
  Transmission Date: 20140711
  Serious: Yes (Hospitalization, Other)
  Sender: FDA-Public Use
  Company Number: US-PFIZER INC-2013272601

PATIENT
  Age: 56 Year
  Sex: Male
  Weight: 74.38 kg

DRUGS (8)
  1. LYRICA [Suspect]
     Indication: ANXIETY
     Dosage: 75 MG, 2X/DAY
  2. LYRICA [Suspect]
     Indication: DEPRESSION
  3. VFEND [Suspect]
     Indication: BRONCHOPULMONARY ASPERGILLOSIS
     Dosage: 250 MG, 2X/DAY
     Dates: start: 201304
  4. VENTOLIN HFA [Concomitant]
     Indication: ASTHMA
     Dosage: UNK, AS NEEDED
  5. SYMBICORT [Concomitant]
     Indication: ASTHMA
     Dosage: 2 PUFFS, 2X/DAY
  6. COMBIVIR [Concomitant]
     Indication: HIV INFECTION
     Dosage: TWO TABLETS, 2X/DAY
     Route: 048
  7. VIRACEPT [Concomitant]
     Indication: HIV INFECTION
     Dosage: 500 MG, 2X/DAY
     Route: 048
  8. LASIX [Concomitant]
     Indication: DIURETIC THERAPY
     Dosage: 40 MG, 2X/DAY

REACTIONS (3)
  - Off label use [Unknown]
  - Pneumothorax [Unknown]
  - Liver function test abnormal [Unknown]
